FAERS Safety Report 12993969 (Version 2)
Quarter: 2017Q1

REPORT INFORMATION
  Report Type: Spontaneous
  Country: ES (occurrence: ES)
  Receive Date: 20161202
  Receipt Date: 20170131
  Transmission Date: 20170428
  Serious: Yes (Other)
  Sender: FDA-Public Use
  Company Number: ES-TEVA-714593ISR

PATIENT
  Age: 58 Year
  Sex: Female
  Weight: 72 kg

DRUGS (4)
  1. ACTOCORTINA 100 [Suspect]
     Active Substance: HYDROCORTISONE SODIUM PHOSPHATE
  2. TARDYFERON 80MG [Concomitant]
     Dosage: 80 MILLIGRAM DAILY;
  3. OXALIPLATINO TEVA 5MG/ML CONCENTRADO PARA SOLUCION PARA PERFUSION EFG, [Suspect]
     Active Substance: OXALIPLATIN
     Indication: COLON CANCER
     Route: 042
     Dates: start: 20161102, end: 20161102
  4. PANTOPRAZOLE 20MG [Concomitant]
     Active Substance: PANTOPRAZOLE SODIUM
     Dosage: 20 MILLIGRAM DAILY;

REACTIONS (7)
  - Dyspnoea [Recovered/Resolved]
  - Respiratory disorder [Unknown]
  - Dysphonia [Unknown]
  - Aphonia [Recovered/Resolved]
  - Infusion related reaction [Recovered/Resolved with Sequelae]
  - Erythema [Recovered/Resolved]
  - Rash generalised [Unknown]

NARRATIVE: CASE EVENT DATE: 20161102
